FAERS Safety Report 8284318-0 (Version None)
Quarter: 2012Q2

REPORT INFORMATION
  Report Type: 
  Country: None (occurrence: None)
  Receive Date: 20120413
  Receipt Date: 20110318
  Transmission Date: 20120825
  Serious: No
  Sender: FDA-Public Use
  Company Number: US-ASTRAZENECA-2011SE15966

PATIENT
  Age: 37 Year
  Sex: Male
  Weight: 84 kg

DRUGS (2)
  1. NEXIUM [Suspect]
     Indication: EROSIVE OESOPHAGITIS
     Route: 048
     Dates: start: 20090101, end: 20110101
  2. NEXIUM [Suspect]
     Route: 048
     Dates: start: 20110101

REACTIONS (3)
  - OESOPHAGITIS [None]
  - GASTROINTESTINAL INFECTION [None]
  - DRUG INEFFECTIVE [None]
